FAERS Safety Report 6055303-4 (Version None)
Quarter: 2009Q1

REPORT INFORMATION
  Report Type: 
  Country: None (occurrence: None)
  Receive Date: 20090128
  Receipt Date: 20090116
  Transmission Date: 20090719
  Serious: Yes (Other)
  Sender: FDA-Public Use
  Company Number: AU-PFIZER INC-2009157239

PATIENT

DRUGS (2)
  1. NEURONTIN [Suspect]
     Dosage: 600 MG, 3X/DAY
  2. DRUG, UNSPECIFIED [Concomitant]

REACTIONS (1)
  - PLEURAL EFFUSION [None]
